FAERS Safety Report 20795500 (Version 10)
Quarter: 2025Q1

REPORT INFORMATION
  Report Type: Report from Study
  Country: US (occurrence: US)
  Receive Date: 20220506
  Receipt Date: 20250318
  Transmission Date: 20250408
  Serious: Yes (Hospitalization, Other)
  Sender: TAKEDA
  Company Number: US-TAKEDA-2022TUS030318

PATIENT
  Age: 71 Year
  Sex: Female
  Weight: 65.76 kg

DRUGS (24)
  1. HUMAN IMMUNOGLOBULIN G [Suspect]
     Active Substance: HUMAN IMMUNOGLOBULIN G
     Indication: Immunodeficiency common variable
     Dosage: 50 GRAM, Q4WEEKS
     Dates: start: 20180125
  2. HUMAN IMMUNOGLOBULIN G [Suspect]
     Active Substance: HUMAN IMMUNOGLOBULIN G
     Dosage: 60 GRAM, Q4WEEKS
  3. HUMAN IMMUNOGLOBULIN G [Suspect]
     Active Substance: HUMAN IMMUNOGLOBULIN G
     Dosage: 45 GRAM, Q4WEEKS
  4. ACETAMINOPHEN [Concomitant]
     Active Substance: ACETAMINOPHEN
  5. DIPHENHYDRAMINE HYDROCHLORIDE [Concomitant]
     Active Substance: DIPHENHYDRAMINE HYDROCHLORIDE
  6. SODIUM CHLORIDE [Concomitant]
     Active Substance: SODIUM CHLORIDE
  7. EPINEPHRINE [Concomitant]
     Active Substance: EPINEPHRINE
  8. COMBIGAN [Concomitant]
     Active Substance: BRIMONIDINE TARTRATE\TIMOLOL MALEATE
  9. AZELASTINE HYDROCHLORIDE [Concomitant]
     Active Substance: AZELASTINE HYDROCHLORIDE
  10. FLUTICASONE PROPIONATE [Concomitant]
     Active Substance: FLUTICASONE PROPIONATE
  11. CALTRATE WITH VITAMIN D [Concomitant]
     Active Substance: CALCIUM CARBONATE\CHOLECALCIFEROL
  12. SIMVASTATIN [Concomitant]
     Active Substance: SIMVASTATIN
  13. Coq [Concomitant]
  14. VITAMIN D3 [Concomitant]
     Active Substance: CHOLECALCIFEROL
  15. ZOCOR [Concomitant]
     Active Substance: SIMVASTATIN
  16. TRAVATAN Z [Concomitant]
     Active Substance: TRAVOPROST
  17. CYANOCOBALAMIN [Concomitant]
     Active Substance: CYANOCOBALAMIN
  18. COLACE [Concomitant]
     Active Substance: DOCUSATE SODIUM
  19. ATORVASTATIN CALCIUM [Concomitant]
     Active Substance: ATORVASTATIN CALCIUM
  20. VITAMIN C [Concomitant]
     Active Substance: ASCORBIC ACID
  21. Brimonidine tartrate;Timolol [Concomitant]
  22. Hair skin nails [Concomitant]
  23. FAMOTIDINE [Concomitant]
     Active Substance: FAMOTIDINE
  24. LORATADINE [Concomitant]
     Active Substance: LORATADINE

REACTIONS (11)
  - Gastric cancer [Unknown]
  - Intestinal obstruction [Unknown]
  - Pulmonary mass [Unknown]
  - Cataract [Unknown]
  - COVID-19 [Unknown]
  - Weight decreased [Unknown]
  - Urinary tract infection [Unknown]
  - Poor venous access [Unknown]
  - Dehydration [Unknown]
  - Vein rupture [Unknown]
  - Inappropriate schedule of product administration [Unknown]

NARRATIVE: CASE EVENT DATE: 20230123
